FAERS Safety Report 4619846-X (Version None)
Quarter: 2005Q1

REPORT INFORMATION
  Report Type: 
  Country: None (occurrence: None)
  Receive Date: 20050328
  Receipt Date: 20050317
  Transmission Date: 20050727
  Serious: Yes (Other)
  Sender: FDA-Public Use
  Company Number: FR-JNJFOC-20050304406

PATIENT
  Age: 34 Year
  Sex: Male

DRUGS (1)
  1. REMICADE [Suspect]
     Indication: ANKYLOSING SPONDYLITIS
     Dosage: 24 DOSES.
     Route: 042

REACTIONS (2)
  - ABNORMAL BEHAVIOUR [None]
  - APHASIA [None]
